FAERS Safety Report 7127549-5 (Version None)
Quarter: 2010Q4

REPORT INFORMATION
  Report Type: 
  Country: None (occurrence: None)
  Receive Date: 20101129
  Receipt Date: 20101118
  Transmission Date: 20110411
  Serious: Yes (Other)
  Sender: FDA-Public Use
  Company Number: US-PFIZER INC-2010124777

PATIENT
  Sex: Female
  Weight: 61 kg

DRUGS (1)
  1. TOVIAZ [Suspect]
     Indication: POLYURIA
     Dosage: 4 MG, 1X/DAY
     Dates: start: 20100916, end: 20100923

REACTIONS (2)
  - BLINDNESS UNILATERAL [None]
  - VISUAL FIELD DEFECT [None]
